FAERS Safety Report 9821183 (Version 2)
Quarter: 2014Q1

REPORT INFORMATION
  Report Type: Spontaneous
  Country: US (occurrence: US)
  Receive Date: 20140116
  Receipt Date: 20140116
  Transmission Date: 20141002
  Serious: Yes (Other)
  Sender: FDA-Public Use
  Company Number: US-RB-062488-14

PATIENT
  Age: 37 Year
  Sex: Male

DRUGS (10)
  1. SUBOXONE TABLET [Suspect]
     Indication: DRUG DEPENDENCE
     Route: 060
     Dates: start: 2006, end: 2010
  2. SUBOXONE TABLET [Suspect]
     Route: 060
     Dates: start: 2010, end: 2013
  3. SUBOXONE FILM [Suspect]
     Indication: DRUG DEPENDENCE
     Dosage: SUBOXONE FILM
     Route: 060
     Dates: start: 2010, end: 2010
  4. SUBOXONE FILM [Suspect]
     Dosage: SUBOXONE FILM
     Route: 060
     Dates: start: 2013, end: 20140103
  5. XANAX [Concomitant]
     Indication: ANXIETY
     Dosage: 2 TO 3 TIMES DAILY AS NEEDED
     Route: 048
     Dates: start: 2001
  6. PENTASA [Concomitant]
     Indication: CROHN^S DISEASE
     Dosage: 5 A DAY AS NEEDED
     Route: 048
     Dates: start: 2001
  7. MARIJUANA [Concomitant]
     Indication: EPILEPSY
     Dosage: DOSING DETAILS UNKNOWN; REGULARLY, SMOKES ALL THE TIME UNLESS HE CANNOT FIND ANY
     Route: 055
  8. MARIJUANA [Concomitant]
     Indication: PAIN
     Dosage: DOSING DETAILS UNKNOWN; REGULARLY, SMOKES ALL THE TIME UNLESS HE CANNOT FIND ANY
     Route: 055
  9. MARIJUANA [Concomitant]
     Indication: EPILEPSY
     Dosage: DOSING DETAILS UNKNOWN; REGULARLY, SMOKES ALL THE TIME UNLESS HE CANNOT FIND ANY
     Route: 055
  10. KEPPRA [Concomitant]
     Indication: CONVULSION
     Dosage: DOSING DETAILS UNKNOWN
     Route: 048

REACTIONS (14)
  - Hepatitis C [Recovered/Resolved]
  - Epilepsy [Recovered/Resolved]
  - Convulsion [Recovered/Resolved]
  - Arthropod bite [Recovered/Resolved]
  - Lyme disease [Recovered/Resolved]
  - Pharyngeal oedema [Not Recovered/Not Resolved]
  - Drug withdrawal syndrome [Not Recovered/Not Resolved]
  - Confusional state [Recovered/Resolved]
  - Wrong technique in drug usage process [Recovered/Resolved]
  - Intentional underdose [Recovered/Resolved]
  - Fatigue [Not Recovered/Not Resolved]
  - Anxiety [Not Recovered/Not Resolved]
  - Depression [Not Recovered/Not Resolved]
  - Pain [Not Recovered/Not Resolved]
